FAERS Safety Report 16568240 (Version 1)
Quarter: 2019Q3

REPORT INFORMATION
  Report Type: Spontaneous
  Country: US (occurrence: US)
  Receive Date: 20190712
  Receipt Date: 20190712
  Transmission Date: 20191004
  Serious: No
  Sender: FDA-Public Use
  Company Number: US-SHIRE-US201922692

PATIENT
  Sex: Female

DRUGS (1)
  1. GATTEX [Suspect]
     Active Substance: TEDUGLUTIDE\WATER
     Indication: PRODUCT USED FOR UNKNOWN INDICATION
     Dosage: 0.9875 (UNK)
     Route: 058
     Dates: start: 20190208

REACTIONS (2)
  - Peripheral swelling [Not Recovered/Not Resolved]
  - Weight gain poor [Not Recovered/Not Resolved]
